FAERS Safety Report 10692805 (Version 1)
Quarter: 2014Q4

REPORT INFORMATION
  Report Type: Spontaneous
  Country: US (occurrence: None)
  Receive Date: 20141223
  Receipt Date: 20141223
  Transmission Date: 20150529
  Serious: Yes (Other)
  Sender: FDA-Public Use
  Company Number: 413383

PATIENT
  Age: 71 Year
  Sex: Male
  Weight: 119.3 kg

DRUGS (2)
  1. NOVOLIN 70/30 [Suspect]
     Active Substance: INSULIN HUMAN
     Indication: TYPE 2 DIABETES MELLITUS
     Dosage: 30 UNITS , BID BEFORE MEALS,  ONGOING
     Route: 058
     Dates: start: 2009, end: 2009
  2. NOVOLIN R [Suspect]
     Active Substance: INSULIN HUMAN
     Indication: TYPE 2 DIABETES MELLITUS
     Dosage: 15-20 UNITS, BID BEFORE MEALS, SUBCUTANEOUS
     Route: 058

REACTIONS (4)
  - Accidental overdose [None]
  - Off label use [None]
  - Wrong technique in drug usage process [None]
  - Blood glucose decreased [None]

NARRATIVE: CASE EVENT DATE: 2009
